FAERS Safety Report 7999289-1 (Version None)
Quarter: 2011Q4

REPORT INFORMATION
  Report Type: 
  Country: None (occurrence: None)
  Receive Date: 20111221
  Receipt Date: 20111214
  Transmission Date: 20120403
  Serious: Yes (Congenital Anomaly)
  Sender: FDA-Public Use
  Company Number: PHHY2011DK108924

PATIENT
  Sex: Male

DRUGS (3)
  1. AKARIN [Suspect]
     Dosage: 20 MG DAILY DOSE
     Route: 048
     Dates: end: 20051101
  2. FLUOXETINE [Suspect]
     Route: 064
  3. AKARIN [Suspect]
     Route: 064

REACTIONS (3)
  - FOETAL EXPOSURE DURING PREGNANCY [None]
  - CONGENITAL VESICOURETERIC REFLUX [None]
  - PSYCHOMOTOR RETARDATION [None]
